FAERS Safety Report 9974034 (Version 1)
Quarter: 2014Q1

REPORT INFORMATION
  Report Type: Spontaneous
  Country: US (occurrence: None)
  Receive Date: 20140127
  Receipt Date: 20140127
  Transmission Date: 20141002
  Serious: Yes (Other)
  Sender: FDA-Public Use
  Company Number: 1255317

PATIENT
  Age: 46 Year
  Sex: Male

DRUGS (7)
  1. RITUXIMAB (RITUXIMAB) [Suspect]
     Indication: DIFFUSE LARGE B-CELL LYMPHOMA
  2. METHOTREXATE (METHOTREXATE) [Suspect]
     Indication: DIFFUSE LARGE B-CELL LYMPHOMA
  3. CYCLOPHOSPHAMIDE (CYCLOPHOSPHAMIDE) [Suspect]
     Indication: DIFFUSE LARGE B-CELL LYMPHOMA
  4. VINCRISTINE [Suspect]
     Indication: DIFFUSE LARGE B-CELL LYMPHOMA
  5. DOXORUBICIN (DOXORUBICIN) [Suspect]
     Indication: DIFFUSE LARGE B-CELL LYMPHOMA
  6. PREDNISONE (PREDNISONE) [Suspect]
     Indication: DIFFUSE LARGE B-CELL LYMPHOMA
  7. CLOZAPINE (CLOZAPINE) [Concomitant]

REACTIONS (1)
  - Agranulocytosis [None]
